FAERS Safety Report 16776065 (Version 1)
Quarter: 2019Q3

REPORT INFORMATION
  Report Type: Spontaneous
  Country: CA (occurrence: CA)
  Receive Date: 20190905
  Receipt Date: 20190905
  Transmission Date: 20191005
  Serious: Yes (Other)
  Sender: FDA-Public Use
  Company Number: PHHY2019CA205917

PATIENT
  Age: 54 Year
  Sex: Female

DRUGS (2)
  1. NICODERM CQ [Interacting]
     Active Substance: NICOTINE
     Indication: PRODUCT USED FOR UNKNOWN INDICATION
     Dosage: UNK
     Route: 065
  2. TEGRETOL [Suspect]
     Active Substance: CARBAMAZEPINE
     Indication: PRODUCT USED FOR UNKNOWN INDICATION
     Dosage: 200 MG, TID
     Route: 048

REACTIONS (3)
  - Seizure [Recovered/Resolved]
  - Drug interaction [Recovered/Resolved]
  - Therapeutic response decreased [Recovered/Resolved]
